FAERS Safety Report 5227231-5 (Version None)
Quarter: 2007Q1

REPORT INFORMATION
  Report Type: 
  Country: None (occurrence: None)
  Receive Date: 20070202
  Receipt Date: 20070125
  Transmission Date: 20070707
  Serious: Yes (Other)
  Sender: FDA-Public Use
  Company Number: CN-GLAXOSMITHKLINE-B0456677A

PATIENT
  Age: 31 Year
  Sex: Male

DRUGS (2)
  1. HEPTODIN [Suspect]
     Dosage: 100MG PER DAY
     Route: 048
     Dates: start: 20020201
  2. ADEFOVIR DIPIVOXIL KIT [Concomitant]
     Dosage: 10MG PER DAY
     Route: 048
     Dates: start: 20070106

REACTIONS (2)
  - ALANINE AMINOTRANSFERASE INCREASED [None]
  - HBV DNA INCREASED [None]
